FAERS Safety Report 26207952 (Version 1)
Quarter: 2025Q4

REPORT INFORMATION
  Report Type: Spontaneous
  Country: JP (occurrence: JP)
  Receive Date: 20251229
  Receipt Date: 20251229
  Transmission Date: 20260117
  Serious: Yes (Other)
  Sender: SANDOZ
  Company Number: JP-SANDOZ-SDZ2025JP097989

PATIENT
  Age: 2 Year
  Sex: Female

DRUGS (1)
  1. HYCAMTIN [Suspect]
     Active Substance: TOPOTECAN HYDROCHLORIDE
     Indication: Metastases to meninges
     Dosage: HYCAMTIN FOR INJECTION 1.1MG
     Route: 029

REACTIONS (1)
  - Venous occlusion [Unknown]
